FAERS Safety Report 13604328 (Version 1)
Quarter: 2017Q2

REPORT INFORMATION
  Report Type: Spontaneous
  Country: US (occurrence: US)
  Receive Date: 20170601
  Receipt Date: 20170601
  Transmission Date: 20170830
  Serious: Yes (Life-Threatening, Hospitalization)
  Sender: FDA-Public Use
  Company Number: None

PATIENT
  Age: 39 Year
  Sex: Female
  Weight: 78.75 kg

DRUGS (2)
  1. GABAPENTIN. [Concomitant]
     Active Substance: GABAPENTIN
  2. VIIBRYD [Suspect]
     Active Substance: VILAZODONE HYDROCHLORIDE
     Indication: MAJOR DEPRESSION
     Route: 048

REACTIONS (8)
  - Memory impairment [None]
  - Suicide attempt [None]
  - Intentional overdose [None]
  - Therapy change [None]
  - Sleep terror [None]
  - Illusion [None]
  - Neuropathy peripheral [None]
  - Coma [None]

NARRATIVE: CASE EVENT DATE: 20170505
